FAERS Safety Report 16919579 (Version 1)
Quarter: 2019Q4

REPORT INFORMATION
  Report Type: Spontaneous
  Country: US (occurrence: US)
  Receive Date: 20191015
  Receipt Date: 20191015
  Transmission Date: 20200122
  Serious: No
  Sender: FDA-Public Use
  Company Number: None

PATIENT
  Age: 70 Year
  Sex: Female

DRUGS (9)
  1. FLUOXETINE [Concomitant]
     Active Substance: FLUOXETINE HYDROCHLORIDE
     Dates: start: 20191013
  2. METHOCARBAMOL 750 MG [Concomitant]
     Active Substance: METHOCARBAMOL
     Dates: start: 20191009
  3. ALPRAZOLAM 1 MG [Concomitant]
     Active Substance: ALPRAZOLAM
     Dates: start: 20191013
  4. HYOSCYAMINE 25 MG [Concomitant]
     Dates: start: 20191011
  5. PANTOPRAZOLE 40 MG [Concomitant]
     Active Substance: PANTOPRAZOLE SODIUM
     Dates: start: 20191010
  6. SUCRALFATE SUSPENSION 1 GM [Concomitant]
     Dates: start: 20191010
  7. RIFIXAMIN [Concomitant]
     Dates: start: 20191013
  8. MOVANTIK [Suspect]
     Active Substance: NALOXEGOL OXALATE
     Indication: CONSTIPATION
     Route: 048
     Dates: start: 20191014, end: 20191014
  9. ATENOLOL 25 MG [Concomitant]
     Active Substance: ATENOLOL
     Dates: start: 20191010

REACTIONS (5)
  - Chest discomfort [None]
  - Neck pain [None]
  - Pain in jaw [None]
  - Drug hypersensitivity [None]
  - Burning sensation [None]

NARRATIVE: CASE EVENT DATE: 20191014
